FAERS Safety Report 12417803 (Version 1)
Quarter: 2016Q2

REPORT INFORMATION
  Report Type: Spontaneous
  Country: FR (occurrence: FR)
  Receive Date: 20160530
  Receipt Date: 20160530
  Transmission Date: 20160815
  Serious: Yes (Other)
  Sender: FDA-Public Use
  Company Number: FR-009507513-1605FRA013716

PATIENT
  Age: 64 Year
  Sex: Female

DRUGS (10)
  1. PARIET [Concomitant]
     Active Substance: RABEPRAZOLE SODIUM
  2. UVEDOSE [Concomitant]
     Active Substance: CHOLECALCIFEROL
  3. KEYTRUDA [Suspect]
     Active Substance: PEMBROLIZUMAB
     Dosage: 4 CYCLES
     Dates: start: 201507
  4. INEXIUM [Concomitant]
     Active Substance: ESOMEPRAZOLE
  5. KEYTRUDA [Suspect]
     Active Substance: PEMBROLIZUMAB
     Indication: METASTATIC MALIGNANT MELANOMA
     Dosage: 160 MG PER CYCLE
     Route: 042
     Dates: start: 20160302, end: 20160421
  6. TAHOR [Concomitant]
     Active Substance: ATORVASTATIN CALCIUM
  7. DAFALGAN [Concomitant]
     Active Substance: ACETAMINOPHEN
  8. DEXERYL TABLETS [Concomitant]
  9. FORTZAAR [Concomitant]
     Active Substance: HYDROCHLOROTHIAZIDE\LOSARTAN POTASSIUM
  10. DIFFU-K [Concomitant]
     Active Substance: POTASSIUM CHLORIDE

REACTIONS (4)
  - Abdominal pain upper [Recovering/Resolving]
  - Weight decreased [Not Recovered/Not Resolved]
  - Nausea [Recovering/Resolving]
  - Vomiting [Recovering/Resolving]

NARRATIVE: CASE EVENT DATE: 201603
